FAERS Safety Report 8760594 (Version 2)
Quarter: 2012Q4

REPORT INFORMATION
  Report Type: Spontaneous
  Country: FR (occurrence: None)
  Receive Date: 20120820
  Receipt Date: 20120905
  Transmission Date: 20130627
  Serious: Yes (Other)
  Sender: FDA-Public Use
  Company Number: 2012FR0250

PATIENT
  Age: 71 Year
  Sex: Female

DRUGS (8)
  1. ANAKINRA [Suspect]
     Indication: GOUTY ARTHRITIS
  2. PROGRAF (TACROLIMUS) [Suspect]
  3. COLCHICINE (COLCHICINE) [Concomitant]
  4. PREDNISONE (PREDNISOLONE) [Concomitant]
  5. ADENURIC (FEBUXOSTAT) [Concomitant]
  6. LESCOL (FLUVASTATINE) [Concomitant]
  7. TRIATEC (RAMIPRIL) [Concomitant]
  8. INSULIN (INSULIN) [Concomitant]

REACTIONS (2)
  - Renal impairment [None]
  - Neutropenia [None]
